FAERS Safety Report 15884989 (Version 1)
Quarter: 2019Q1

REPORT INFORMATION
  Report Type: Spontaneous
  Country: FR (occurrence: FR)
  Receive Date: 20190129
  Receipt Date: 20190129
  Transmission Date: 20190417
  Serious: Yes (Life-Threatening)
  Sender: FDA-Public Use
  Company Number: FR-PFIZER INC-2019035086

PATIENT
  Age: 50 Year
  Sex: Female

DRUGS (3)
  1. LEVOTHYROX [Concomitant]
     Active Substance: LEVOTHYROXINE
     Dosage: UNK
  2. CEFAZOLIN [Suspect]
     Active Substance: CEFAZOLIN
     Indication: ANAESTHESIA
     Dosage: UNK
     Route: 042
     Dates: start: 20180921
  3. TARDYFERON [Concomitant]
     Active Substance: FERROUS SULFATE
     Dosage: UNK

REACTIONS (3)
  - Anaphylactic reaction [Recovered/Resolved]
  - Urticaria [Recovered/Resolved]
  - Circulatory collapse [Recovered/Resolved]

NARRATIVE: CASE EVENT DATE: 20180921
